FAERS Safety Report 6469248-9 (Version None)
Quarter: 2009Q4

REPORT INFORMATION
  Report Type: 
  Country: None (occurrence: None)
  Receive Date: 20091203
  Receipt Date: 20071109
  Transmission Date: 20100525
  Serious: Yes (Hospitalization)
  Sender: FDA-Public Use
  Company Number: US-ELI_LILLY_AND_COMPANY-US200709005602

PATIENT
  Sex: Female
  Weight: 66.666 kg

DRUGS (9)
  1. EVISTA [Suspect]
     Indication: OSTEOPENIA
     Dosage: 60 MG, UNK
     Route: 048
     Dates: start: 19961101, end: 20061101
  2. EVISTA [Suspect]
     Dosage: 60 MG, UNK
     Route: 048
  3. CALCIUM CARBONATE [Concomitant]
     Indication: SUPPLEMENTATION THERAPY
     Dosage: 1500 MG, UNK
  4. METOPROLOL TARTRATE [Concomitant]
     Dosage: 50 MG, UNK
     Route: 048
  5. COZAAR [Concomitant]
     Dosage: 50 MG, UNK
  6. LORAZEPAM [Concomitant]
     Dosage: 0.5 UNK, UNK
  7. ASPIRIN [Concomitant]
     Dosage: 81 MG, UNK
     Route: 048
  8. PRILOSEC [Concomitant]
     Dosage: 20 MG, UNK
  9. LOVASTATIN [Concomitant]
     Dosage: 10 MG, UNK

REACTIONS (3)
  - HYPERTENSION [None]
  - OSTEOPOROSIS [None]
  - OVARIAN CYST [None]
